FAERS Safety Report 6701413-5 (Version None)
Quarter: 2010Q2

REPORT INFORMATION
  Report Type: 
  Country: None (occurrence: None)
  Receive Date: 20100429
  Receipt Date: 20100415
  Transmission Date: 20101027
  Serious: Yes (Life-Threatening, Hospitalization)
  Sender: FDA-Public Use
  Company Number: GB-RANBAXY-2010RR-33331

PATIENT
  Age: 48 Year
  Sex: Male
  Weight: 81 kg

DRUGS (5)
  1. TOPIRAMATE [Suspect]
     Indication: NEURALGIA
     Route: 048
  2. GABAPENTIN [Concomitant]
     Indication: NEURALGIA
     Dosage: 300 MG, UNK
     Route: 048
  3. HYPROMELLOSE [Concomitant]
     Dosage: UNK
     Route: 047
     Dates: start: 20070101
  4. SIMVASTATIN [Concomitant]
     Dosage: 40 MG, UNK
     Route: 048
  5. VENLAFAXINE [Concomitant]
     Dosage: 150 MG, UNK
     Route: 048

REACTIONS (6)
  - AFFECT LABILITY [None]
  - ANGER [None]
  - MOOD ALTERED [None]
  - PARAESTHESIA [None]
  - SUICIDAL IDEATION [None]
  - SUICIDE ATTEMPT [None]
